FAERS Safety Report 16636791 (Version 4)
Quarter: 2019Q3

REPORT INFORMATION
  Report Type: Report from Study
  Country: BE (occurrence: BE)
  Receive Date: 20190726
  Receipt Date: 20190826
  Transmission Date: 20191004
  Serious: Yes (Hospitalization)
  Sender: FDA-Public Use
  Company Number: PHHY2019BE165107

PATIENT
  Age: 74 Year
  Sex: Female
  Weight: 56.7 kg

DRUGS (3)
  1. BYL719 [Suspect]
     Active Substance: ALPELISIB
     Indication: BREAST CANCER METASTATIC
     Dosage: 300 MG, UNK
     Route: 048
     Dates: start: 20190618
  2. PANTOMED (DEXPANTHENOL) [Concomitant]
     Active Substance: DEXPANTHENOL
     Indication: PAIN PROPHYLAXIS
     Dosage: 40 MG, UNK
     Route: 065
  3. BYL719 [Suspect]
     Active Substance: ALPELISIB
     Dosage: 300 MG, UNK
     Route: 048
     Dates: start: 20190716

REACTIONS (10)
  - Pneumonia [Unknown]
  - Abdominal pain upper [Unknown]
  - Decreased appetite [Unknown]
  - Concomitant disease aggravated [Not Recovered/Not Resolved]
  - Pyrexia [Unknown]
  - Bile duct obstruction [Not Recovered/Not Resolved]
  - Hepatotoxicity [Unknown]
  - Weight decreased [Unknown]
  - Malaise [Unknown]
  - Chills [Unknown]

NARRATIVE: CASE EVENT DATE: 20190710
